FAERS Safety Report 8841383 (Version 4)
Quarter: 2013Q3

REPORT INFORMATION
  Report Type: Spontaneous
  Country: PR (occurrence: PR)
  Receive Date: 20121015
  Receipt Date: 20130703
  Transmission Date: 20140515
  Serious: Yes (Hospitalization, Congenital Anomaly, Other)
  Sender: FDA-Public Use
  Company Number: PR-ABBOTT-12P-131-0943008-00

PATIENT
  Sex: Male

DRUGS (7)
  1. HUMIRA [Suspect]
     Indication: MATERNAL EXPOSURE TIMING UNSPECIFIED
     Route: 064
  2. MULTIVITAMIN [Concomitant]
     Indication: PRODUCT USED FOR UNKNOWN INDICATION
  3. FOLIC ACID [Concomitant]
     Indication: VITAMIN SUPPLEMENTATION
     Route: 048
     Dates: start: 20130122
  4. IRON [Concomitant]
     Indication: MINERAL SUPPLEMENTATION
     Dosage: UNKNOWN DOSE, TWICE DAILY
     Route: 048
     Dates: start: 20130122
  5. ANTIBIOTICS [Concomitant]
     Indication: SPINAL OPERATION
     Route: 042
     Dates: start: 20130103, end: 20130116
  6. VITAMINS [Concomitant]
     Indication: VITAMIN SUPPLEMENTATION
     Route: 042
     Dates: start: 20130103, end: 20130116
  7. VITAMINS [Concomitant]
     Route: 048
     Dates: start: 20130122

REACTIONS (11)
  - Premature baby [Recovered/Resolved]
  - Meningomyelocele [Not Recovered/Not Resolved]
  - Congenital renal cyst [Not Recovered/Not Resolved]
  - Urinary tract infection [Recovered/Resolved]
  - Diarrhoea [Recovered/Resolved]
  - Foetal exposure during pregnancy [Unknown]
  - Pyrexia [Recovered/Resolved]
  - Faeces discoloured [Recovered/Resolved]
  - Hydronephrosis [Not Recovered/Not Resolved]
  - Pyelonephritis [Not Recovered/Not Resolved]
  - Renal failure [Not Recovered/Not Resolved]
